FAERS Safety Report 5708986-X (Version None)
Quarter: 2008Q2

REPORT INFORMATION
  Report Type: 
  Country: None (occurrence: None)
  Receive Date: 20080414
  Receipt Date: 20080414
  Transmission Date: 20081010
  Serious: Yes (Hospitalization)
  Sender: FDA-Public Use
  Company Number: None

PATIENT
  Age: 35 Year
  Sex: Female
  Weight: 101 kg

DRUGS (2)
  1. CLONAZEPAM [Suspect]
  2. OXYCODONE AND ACETAMINOPHEN [Suspect]

REACTIONS (2)
  - OVERDOSE [None]
  - SUICIDE ATTEMPT [None]
